FAERS Safety Report 9779049 (Version 1)
Quarter: 2013Q4

REPORT INFORMATION
  Report Type: Spontaneous
  Country: GB (occurrence: GB)
  Receive Date: 20131223
  Receipt Date: 20131223
  Transmission Date: 20140711
  Serious: Yes (Life-Threatening, Other)
  Sender: FDA-Public Use
  Company Number: GB-JNJFOC-20131212920

PATIENT
  Age: 38 Year
  Sex: Male
  Weight: 85 kg

DRUGS (4)
  1. EDURANT [Suspect]
     Indication: HIV INFECTION
     Route: 048
     Dates: start: 20120801, end: 20131127
  2. EMTRICITABINE [Concomitant]
     Route: 065
  3. OLANZAPINE [Concomitant]
     Route: 065
  4. TENOFOVIR [Concomitant]
     Route: 065

REACTIONS (1)
  - Electrocardiogram QT prolonged [Recovering/Resolving]
